FAERS Safety Report 17669538 (Version 2)
Quarter: 2020Q3

REPORT INFORMATION
  Report Type: Spontaneous
  Country: US (occurrence: US)
  Receive Date: 20200415
  Receipt Date: 20200914
  Transmission Date: 20201102
  Serious: Yes (Other)
  Sender: FDA-Public Use
  Company Number: US-GILEAD-2020-0458780

PATIENT
  Age: 31 Year
  Sex: Female

DRUGS (1)
  1. COMPLERA [Suspect]
     Active Substance: EMTRICITABINE\RILPIVIRINE HYDROCHLORIDE\TENOFOVIR DISOPROXIL FUMARATE
     Indication: HIV INFECTION
     Dosage: UNK
     Route: 048
     Dates: start: 201702, end: 201809

REACTIONS (8)
  - Osteoporosis [Not Recovered/Not Resolved]
  - Economic problem [Unknown]
  - Tooth loss [Not Recovered/Not Resolved]
  - Emotional distress [Unknown]
  - Bone density decreased [Unknown]
  - Osteonecrosis [Not Recovered/Not Resolved]
  - Bone loss [Unknown]
  - Pain [Unknown]

NARRATIVE: CASE EVENT DATE: 2018
